FAERS Safety Report 6596507-1 (Version None)
Quarter: 2010Q1

REPORT INFORMATION
  Report Type: 
  Country: None (occurrence: None)
  Receive Date: 20100216
  Receipt Date: 20100203
  Transmission Date: 20100710
  Serious: Yes (Hospitalization)
  Sender: FDA-Public Use
  Company Number: 234977J09USA

PATIENT
  Age: 42 Year
  Sex: Male

DRUGS (1)
  1. REBIF [Suspect]
     Indication: MULTIPLE SCLEROSIS
     Dates: start: 20090521, end: 20090101

REACTIONS (4)
  - BURNS THIRD DEGREE [None]
  - CERVICAL VERTEBRAL FRACTURE [None]
  - FALL [None]
  - PULMONARY EMBOLISM [None]
